FAERS Safety Report 5487956-3 (Version None)
Quarter: 2007Q4

REPORT INFORMATION
  Report Type: 
  Country: None (occurrence: None)
  Receive Date: 20071012
  Receipt Date: 20071012
  Transmission Date: 20080405
  Serious: Yes (Death)
  Sender: FDA-Public Use
  Company Number: None

PATIENT
  Age: 56 Year
  Sex: Male

DRUGS (2)
  1. DOCETAXEL [Suspect]
     Indication: LIP AND/OR ORAL CAVITY CANCER
     Dosage: 142MG ONCE IV
     Route: 042
     Dates: start: 20070724, end: 20070724
  2. FLUOROURACIL [Suspect]
     Indication: LIP AND/OR ORAL CAVITY CANCER
     Dosage: 1890MG OTHER IV
     Route: 042
     Dates: start: 20070724, end: 20070728

REACTIONS (3)
  - LEUKOPENIA [None]
  - PNEUMOTHORAX [None]
  - SEPSIS [None]
